FAERS Safety Report 5205504-X (Version None)
Quarter: 2006Q4

REPORT INFORMATION
  Report Type: 
  Country: None (occurrence: None)
  Receive Date: 20061027
  Receipt Date: 20051101
  Transmission Date: 20070319
  Serious: Yes (Other)
  Sender: FDA-Public Use
  Company Number: HQWYE361602NOV05

PATIENT
  Sex: Female

DRUGS (1)
  1. PREMARIN [Suspect]
     Indication: MENOPAUSE
     Dosage: 0.625 DAILY, ORAL
     Route: 048
     Dates: start: 20051001, end: 20051001

REACTIONS (1)
  - DYSPEPSIA [None]
